FAERS Safety Report 7722666-0 (Version None)
Quarter: 2011Q3

REPORT INFORMATION
  Report Type: 
  Country: None (occurrence: None)
  Receive Date: 20110831
  Receipt Date: 20110822
  Transmission Date: 20111222
  Serious: Yes (Hospitalization, Other)
  Sender: FDA-Public Use
  Company Number: US-RB-031713-11

PATIENT
  Sex: Male

DRUGS (4)
  1. SUBOXONE [Suspect]
     Indication: DRUG DEPENDENCE
     Dosage: DOSING INFORMATION UNKNOWN
     Route: 060
  2. SUBOXONE [Suspect]
     Dosage: DOSING INFORMATION UNKNOWN
     Route: 060
  3. ALCOHOL [Suspect]
     Indication: PRODUCT USED FOR UNKNOWN INDICATION
     Dosage: ^1 BEER^
     Route: 048
     Dates: start: 20110801, end: 20110801
  4. HEROIN [Suspect]
     Indication: PRODUCT USED FOR UNKNOWN INDICATION
     Dosage: DOSING INFORMATION UNKNOWN
     Route: 065

REACTIONS (3)
  - ADVERSE DRUG REACTION [None]
  - DRUG ABUSE [None]
  - OVERDOSE [None]
